FAERS Safety Report 6454886-X (Version None)
Quarter: 2009Q4

REPORT INFORMATION
  Report Type: 
  Country: None (occurrence: None)
  Receive Date: 20091124
  Receipt Date: 20091119
  Transmission Date: 20100525
  Serious: Yes (Other)
  Sender: FDA-Public Use
  Company Number: US-GENENTECH-290961

PATIENT
  Sex: Female

DRUGS (6)
  1. RITUXAN [Suspect]
     Indication: LYMPHOMA
     Dosage: 750 MG, Q3W
     Route: 042
     Dates: start: 20090923
  2. LIPITOR [Concomitant]
     Indication: DRUG USE FOR UNKNOWN INDICATION
     Dosage: 20 MG, QD
  3. PLAVIX [Concomitant]
     Indication: DRUG USE FOR UNKNOWN INDICATION
     Dosage: 75 MG, QD
  4. ZETIA [Concomitant]
     Indication: DRUG USE FOR UNKNOWN INDICATION
     Dosage: 10 MG, UNK
  5. CALCIUM [Concomitant]
     Indication: DRUG USE FOR UNKNOWN INDICATION
  6. PROCARDIA [Concomitant]
     Indication: DRUG USE FOR UNKNOWN INDICATION

REACTIONS (3)
  - DYSPNOEA [None]
  - PRURITUS [None]
  - TREMOR [None]
